FAERS Safety Report 8326550-3 (Version None)
Quarter: 2012Q2

REPORT INFORMATION
  Report Type: 
  Country: None (occurrence: None)
  Receive Date: 20120501
  Receipt Date: 20110510
  Transmission Date: 20120825
  Serious: No
  Sender: FDA-Public Use
  Company Number: US-MUTUAL PHARMACEUTICAL COMPANY, INC.-SLDC20110001

PATIENT
  Sex: Female

DRUGS (7)
  1. SULINDAC [Suspect]
     Indication: RHEUMATOID ARTHRITIS
     Route: 048
     Dates: start: 20110501
  2. PREDNISONE [Concomitant]
     Route: 048
  3. PREVACID [Concomitant]
     Indication: PROPHYLAXIS AGAINST GASTROINTESTINAL ULCER
     Route: 048
  4. TOPROL-XL [Concomitant]
     Indication: PALPITATIONS
     Route: 048
  5. PREDNISONE [Concomitant]
     Indication: RHEUMATOID ARTHRITIS
     Route: 048
  6. LORAZEPAM [Concomitant]
     Indication: ANXIETY
     Route: 048
  7. BENTYL 20 MG [Concomitant]
     Indication: ABDOMINAL PAIN UPPER
     Route: 048

REACTIONS (1)
  - DRUG INEFFECTIVE [None]
